FAERS Safety Report 7815735-8 (Version None)
Quarter: 2011Q4

REPORT INFORMATION
  Report Type: 
  Country: None (occurrence: None)
  Receive Date: 20111014
  Receipt Date: 20111010
  Transmission Date: 20120403
  Serious: Yes (Death, Hospitalization)
  Sender: FDA-Public Use
  Company Number: LB-ABBOTT-11P-093-0840896-00

PATIENT
  Age: 75 Year
  Sex: Male

DRUGS (2)
  1. HUMIRA [Suspect]
     Indication: CROHN'S DISEASE
     Dosage: 160/80 MG LOADING DOSE
     Route: 058
     Dates: start: 20101102, end: 20101102
  2. HUMIRA [Suspect]
     Dates: end: 20110622

REACTIONS (2)
  - ANURIA [None]
  - HAEMATURIA [None]
